FAERS Safety Report 18946776 (Version 1)
Quarter: 2021Q1

REPORT INFORMATION
  Report Type: Spontaneous
  Country: US (occurrence: US)
  Receive Date: 20210226
  Receipt Date: 20210226
  Transmission Date: 20210420
  Serious: No
  Sender: FDA-Public Use
  Company Number: US-EVOLUS, INC.-2020EV000640

PATIENT
  Age: 36 Year

DRUGS (4)
  1. JEUVEAU [Suspect]
     Active Substance: PRABOTULINUMTOXINA-XVFS
     Indication: SKIN WRINKLING
     Dosage: GLABELLAR LINES
     Dates: start: 20201128
  2. JEUVEAU [Suspect]
     Active Substance: PRABOTULINUMTOXINA-XVFS
     Indication: SKIN WRINKLING
     Dosage: FOREHEAD
     Dates: start: 20201128
  3. JEUVEAU [Suspect]
     Active Substance: PRABOTULINUMTOXINA-XVFS
     Indication: PRODUCT USED FOR UNKNOWN INDICATION
     Dosage: CROW^S FEET
     Dates: start: 20201128
  4. JEUVEAU [Suspect]
     Active Substance: PRABOTULINUMTOXINA-XVFS
     Dosage: LIP FLIP
     Dates: start: 20201128

REACTIONS (2)
  - Drug effect less than expected [Unknown]
  - Off label use [Unknown]
